FAERS Safety Report 13045521 (Version 1)
Quarter: 2016Q4

REPORT INFORMATION
  Report Type: Report from Study
  Country: NL (occurrence: NL)
  Receive Date: 20161220
  Receipt Date: 20161220
  Transmission Date: 20170207
  Serious: Yes (Other)
  Sender: FDA-Public Use
  Company Number: NL-BAYER-2016-195477

PATIENT
  Age: 28 Year
  Sex: Female

DRUGS (1)
  1. MIRENA [Suspect]
     Active Substance: LEVONORGESTREL
     Indication: CONTRACEPTION
     Dosage: 20 MCG/24HR, CONT
     Route: 015
     Dates: start: 201601

REACTIONS (4)
  - Bacterial vaginosis [Not Recovered/Not Resolved]
  - Enterococcus test positive [None]
  - Unevaluable event [Not Recovered/Not Resolved]
  - Genital haemorrhage [Not Recovered/Not Resolved]
